FAERS Safety Report 17663361 (Version 1)
Quarter: 2020Q2

REPORT INFORMATION
  Report Type: Spontaneous
  Country: US (occurrence: US)
  Receive Date: 20200413
  Receipt Date: 20200413
  Transmission Date: 20200713
  Serious: Yes (Hospitalization)
  Sender: FDA-Public Use
  Company Number: US-ASTRAZENECA-2019SF69707

PATIENT
  Age: 2 Year
  Sex: Male
  Weight: 10 kg

DRUGS (8)
  1. POLY-VI-SOL/IRON [Concomitant]
  2. DIAZEPAM. [Concomitant]
     Active Substance: DIAZEPAM
  3. FLOVENT HFA [Concomitant]
     Active Substance: FLUTICASONE PROPIONATE
  4. ALBUTEROL SULFATE. [Concomitant]
     Active Substance: ALBUTEROL SULFATE
  5. SIMETHICONE (DIMETHICONE) [Concomitant]
     Active Substance: DIMETHICONE
  6. SYNAGIS [Suspect]
     Active Substance: PALIVIZUMAB
     Indication: ANTIVIRAL PROPHYLAXIS
     Dosage: (100MG/1 ML AND 50 MG/0.5 ML ) 15 MG/KG, MONTHLY
     Route: 030
     Dates: start: 201810
  7. CHILDRENS TYLENOL [Concomitant]
     Active Substance: ACETAMINOPHEN
  8. SODIUM CHLORIDE. [Concomitant]
     Active Substance: SODIUM CHLORIDE

REACTIONS (1)
  - Ill-defined disorder [Unknown]
